FAERS Safety Report 8266026-5 (Version None)
Quarter: 2012Q1

REPORT INFORMATION
  Report Type: 
  Country: None (occurrence: None)
  Receive Date: 20120327
  Receipt Date: 20090729
  Transmission Date: 20120608
  Serious: Yes (Hospitalization)
  Sender: FDA-Public Use
  Company Number: PHEH2009US08389

PATIENT
  Sex: Male

DRUGS (13)
  1. METOPROLOL TARTRATE [Concomitant]
  2. GLEEVEC [Suspect]
     Dosage: 400 MG, QD, ORAL
     Route: 048
  3. TYLENOL W/CODEINE NO.2 (CODEINE PHOSPHATE, PARACETAMOL) [Concomitant]
  4. MORPHINE SULFATE INJ [Concomitant]
  5. DILAUDID [Concomitant]
  6. METFORMIN HCL [Concomitant]
  7. GABAPENTIN [Concomitant]
  8. NEURONTIN [Concomitant]
  9. SIMVASTATIN [Concomitant]
  10. ALLOPURINOL [Concomitant]
  11. FENTANYL [Concomitant]
  12. TIZANIDINE HCL [Concomitant]
  13. MECLIZINE [Concomitant]

REACTIONS (1)
  - PAIN [None]
